FAERS Safety Report 7940390 (Version 7)
Quarter: 2015Q1

REPORT INFORMATION
  Report Type: Spontaneous
  Country: US (occurrence: US)
  Receive Date: 20110511
  Receipt Date: 20150325
  Transmission Date: 20150721
  Serious: Yes (Other)
  Sender: FDA-Public Use
  Company Number: US-ASTRAZENECA-2011SE26230

PATIENT
  Age: 27193 Day
  Sex: Female
  Weight: 85.7 kg

DRUGS (21)
  1. LISINOPRIL. [Suspect]
     Active Substance: LISINOPRIL
     Route: 048
  2. TOPROL XL [Suspect]
     Active Substance: METOPROLOL SUCCINATE
     Route: 048
  3. OTHER [Concomitant]
     Active Substance: UNSPECIFIED INGREDIENT
     Indication: DIURETIC THERAPY
     Route: 048
  4. RHINOCORT AQUA [Suspect]
     Active Substance: BUDESONIDE
     Indication: SINUSITIS
     Dosage: 32 MCG, 2 SPRAYS IN EACH NOSTRIL QD
     Route: 045
  5. CRESTOR [Suspect]
     Active Substance: ROSUVASTATIN CALCIUM
     Indication: BLOOD CHOLESTEROL INCREASED
     Route: 048
  6. ACCOLATE [Suspect]
     Active Substance: ZAFIRLUKAST
     Indication: ASTHMA
     Route: 048
  7. OTHER [Concomitant]
     Active Substance: UNSPECIFIED INGREDIENT
     Indication: NERVOUS SYSTEM DISORDER
     Route: 048
  8. OTHER NASAL SPRAYS [Concomitant]
     Indication: HYPERSENSITIVITY
     Route: 045
  9. NEXIUM [Suspect]
     Active Substance: ESOMEPRAZOLE MAGNESIUM
     Indication: GASTROOESOPHAGEAL REFLUX DISEASE
     Route: 048
  10. OTHER [Concomitant]
     Active Substance: UNSPECIFIED INGREDIENT
     Indication: BLOOD CHOLESTEROL INCREASED
     Route: 048
  11. RHINOCORT AQUA [Suspect]
     Active Substance: BUDESONIDE
     Indication: ASTHMA
     Dosage: 32 MCG, 2 SPRAYS IN EACH NOSTRIL QD
     Route: 045
  12. ZOLPIDEM TARTRATE. [Concomitant]
     Active Substance: ZOLPIDEM TARTRATE
     Route: 048
  13. OTHER NASAL SPRAYS [Concomitant]
     Indication: BLOOD PRESSURE ABNORMAL
     Route: 045
  14. OTHER NASAL SPRAYS [Concomitant]
     Indication: RESPIRATORY DISORDER
     Route: 045
  15. GABAPENTIN. [Concomitant]
     Active Substance: GABAPENTIN
     Route: 048
  16. ACCOLATE [Suspect]
     Active Substance: ZAFIRLUKAST
     Indication: ASTHMA
     Route: 048
  17. NEBULIZER [Concomitant]
     Active Substance: UNSPECIFIED INGREDIENT
  18. OTHER [Concomitant]
     Active Substance: UNSPECIFIED INGREDIENT
     Indication: BLOOD PRESSURE ABNORMAL
     Route: 048
  19. NEXIUM [Suspect]
     Active Substance: ESOMEPRAZOLE MAGNESIUM
     Indication: GASTROOESOPHAGEAL REFLUX DISEASE
     Dosage: ONE PER DAY
     Route: 048
  20. NEXIUM [Suspect]
     Active Substance: ESOMEPRAZOLE MAGNESIUM
     Indication: GASTROOESOPHAGEAL REFLUX DISEASE
     Dosage: TWO PER DAY
     Route: 048
  21. NEXIUM [Suspect]
     Active Substance: ESOMEPRAZOLE MAGNESIUM
     Indication: GASTROOESOPHAGEAL REFLUX DISEASE
     Route: 048

REACTIONS (25)
  - Fall [Unknown]
  - Lung disorder [Unknown]
  - Off label use [Unknown]
  - Drug ineffective [Unknown]
  - Wrist fracture [Unknown]
  - Cheilitis [Unknown]
  - Mental impairment [Unknown]
  - Weight decreased [Unknown]
  - Drug dose omission [Unknown]
  - Back disorder [Unknown]
  - Stomatitis [Unknown]
  - Rhinorrhoea [Unknown]
  - Cough [Unknown]
  - Nasal congestion [Unknown]
  - Productive cough [Unknown]
  - Body height decreased [Unknown]
  - Gastrooesophageal reflux disease [Unknown]
  - Intentional product misuse [Unknown]
  - Asthma [Unknown]
  - Dysgeusia [Unknown]
  - Oral mucosal blistering [Unknown]
  - Sinusitis [Unknown]
  - Paranasal sinus hypersecretion [Unknown]
  - Drug hypersensitivity [Unknown]
  - Blood glucose abnormal [Unknown]

NARRATIVE: CASE EVENT DATE: 20150123
